FAERS Safety Report 8158047-8 (Version None)
Quarter: 2012Q1

REPORT INFORMATION
  Report Type: 
  Country: None (occurrence: None)
  Receive Date: 20120222
  Receipt Date: 20120217
  Transmission Date: 20120608
  Serious: Yes (Death, Hospitalization)
  Sender: FDA-Public Use
  Company Number: PHHY2010JP48628

PATIENT
  Sex: Male
  Weight: 50 kg

DRUGS (34)
  1. NEORAL [Suspect]
     Dosage: 150 MG, UNK
     Route: 048
     Dates: start: 20091225, end: 20100219
  2. NEORAL [Suspect]
     Dosage: 150 MG, UNK
     Route: 048
     Dates: start: 20110311, end: 20110325
  3. BIFIDOBACTERIUM BIFIDUM [Concomitant]
     Dosage: 1 G, UNK
     Route: 048
     Dates: start: 20090222, end: 20090227
  4. NEORAL [Suspect]
     Dosage: 75 MG, UNK
     Route: 048
     Dates: start: 20090613, end: 20090730
  5. NEORAL [Suspect]
     Dosage: 100 MG, UNK
     Route: 048
     Dates: start: 20090731, end: 20090822
  6. NEORAL [Suspect]
     Dosage: 150 MG, UNK
     Route: 048
     Dates: start: 20101022, end: 20110304
  7. ATRAXIN [Concomitant]
     Indication: DERMATITIS ATOPIC
     Dosage: 25 MG, UNK
     Route: 048
     Dates: start: 19950830, end: 20110909
  8. NEORAL [Suspect]
     Dosage: 125 MG, UNK
     Route: 048
     Dates: start: 20090328, end: 20090508
  9. NEORAL [Suspect]
     Dosage: 150 MG, UNK
     Route: 048
     Dates: start: 20100514, end: 20100723
  10. NEORAL [Suspect]
     Dosage: 150 MG, UNK
     Route: 048
     Dates: start: 20110603, end: 20110722
  11. MYSER [Concomitant]
     Indication: DERMATITIS ATOPIC
     Dosage: UNK UKN, UNK
     Route: 061
     Dates: start: 20070608, end: 20111008
  12. ONEALFA [Concomitant]
     Dosage: 1 UG, UNK
     Route: 048
     Dates: start: 19941228, end: 20110909
  13. TALION [Concomitant]
     Indication: DERMATITIS ATOPIC
     Dosage: 20 MG, UNK
     Route: 048
     Dates: start: 20030104, end: 20110909
  14. KETOPROFEN [Concomitant]
     Dosage: UNK UKN, UNK
     Dates: start: 20110825, end: 20111017
  15. BIO THREE [Concomitant]
     Dosage: UNK UKN, UNK
     Route: 048
     Dates: start: 20091211, end: 20110909
  16. NEORAL [Suspect]
     Dosage: 150 MG, UNK
     Route: 048
     Dates: start: 20110506, end: 20110520
  17. NEORAL [Suspect]
     Dosage: 150 MG, UNK
     Route: 048
     Dates: start: 20110809, end: 20110909
  18. TACROLIMUS [Concomitant]
     Indication: DERMATITIS ATOPIC
     Dosage: UNK UKN, UNK
     Route: 061
     Dates: start: 20070608, end: 20071008
  19. NEORAL [Suspect]
     Dosage: 150 MG, UNK
     Route: 048
     Dates: start: 20100220, end: 20100305
  20. NITRAZEPAM [Concomitant]
     Dosage: 5 MG, UNK
     Route: 048
     Dates: start: 20030118, end: 20110909
  21. ACETAMINOPHEN [Concomitant]
     Dosage: UNK UKN, UNK
     Route: 048
     Dates: start: 20101119, end: 20111017
  22. NEORAL [Suspect]
     Dosage: 100 MG, UNK
     Route: 048
     Dates: start: 20090904, end: 20091224
  23. NEORAL [Suspect]
     Indication: DERMATITIS ATOPIC
     Dosage: 150 MG, UNK
     Route: 048
     Dates: start: 20090221, end: 20090222
  24. NEORAL [Suspect]
     Dosage: 150 MG, UNK
     Route: 048
     Dates: start: 20090509, end: 20090516
  25. NEORAL [Suspect]
     Dosage: 150 MG, UNK
     Route: 048
     Dates: start: 20090530, end: 20090612
  26. PREDNISOLONE [Concomitant]
     Indication: DERMATITIS ATOPIC
     Dosage: 10 MG, UNK
     Route: 048
     Dates: start: 19990914, end: 20110909
  27. ALENDRONATE SODIUM [Concomitant]
     Dosage: UNK UKN, UNK
     Route: 048
     Dates: start: 20060606, end: 20110909
  28. LENDORMIN [Concomitant]
     Dosage: UNK UKN, UNK
     Dates: end: 20110909
  29. NEORAL [Suspect]
     Dosage: 100 MG, UNK
     Route: 048
     Dates: start: 20090224, end: 20090327
  30. NEORAL [Suspect]
     Dosage: 150 MG, UNK
     Route: 048
     Dates: start: 20100313, end: 20100508
  31. NEORAL [Suspect]
     Dosage: 150 MG, UNK
     Route: 048
     Dates: start: 20100730, end: 20100813
  32. ANTEBATE [Concomitant]
     Indication: DERMATITIS ATOPIC
     Dosage: UNK UKN, UNK
     Route: 061
     Dates: start: 20080430, end: 20111008
  33. ALBUMIN TANNATE [Concomitant]
     Dosage: 1.2 G, UNK
     Route: 048
     Dates: start: 20090222, end: 20090227
  34. SCOPOLIA CARNICALA [Concomitant]
     Dosage: 0.2 G, UNK
     Route: 048
     Dates: start: 20090222, end: 20090227

REACTIONS (7)
  - NAUSEA [None]
  - IMMUNOSUPPRESSANT DRUG LEVEL DECREASED [None]
  - SEPSIS [None]
  - SEPTIC SHOCK [None]
  - LOSS OF CONSCIOUSNESS [None]
  - DEPRESSED LEVEL OF CONSCIOUSNESS [None]
  - CEREBRAL INFARCTION [None]
